FAERS Safety Report 15128039 (Version 2)
Quarter: 2018Q3

REPORT INFORMATION
  Report Type: Report from Study
  Country: None (occurrence: TW)
  Receive Date: 20180710
  Receipt Date: 20180730
  Transmission Date: 20181010
  Serious: Yes (Hospitalization)
  Sender: FDA-Public Use
  Company Number: TW-ABBVIE-18K-153-2411955-00

PATIENT
  Age: 67 Year
  Sex: Male
  Weight: 60 kg

DRUGS (24)
  1. TEDALIN [Concomitant]
     Indication: IRON DEFICIENCY ANAEMIA
     Route: 048
     Dates: start: 20180605, end: 20180703
  2. COMPESOLON [Concomitant]
     Active Substance: PREDNISOLONE
     Indication: ENDOCRINE DISORDER
     Route: 048
     Dates: start: 20180605, end: 20180703
  3. COMPESOLON [Concomitant]
     Active Substance: PREDNISOLONE
     Indication: METABOLIC DISORDER
  4. TAMLOSIN D [Concomitant]
     Indication: URINARY TRACT DISORDER
     Route: 048
     Dates: start: 20180703
  5. COXINE [Concomitant]
     Indication: CARDIOVASCULAR DISORDER
     Route: 048
     Dates: start: 20180627
  6. TAMLOSIN D [Concomitant]
     Indication: NEPHROTIC SYNDROME
  7. SALINE [Concomitant]
     Active Substance: SODIUM CHLORIDE
     Indication: NUTRITIONAL SUPPLEMENTATION
     Dosage: 0.9 PERCENT 500 ML/BAG, STAT
     Route: 041
     Dates: start: 20180624, end: 20180624
  8. HUMIRA [Suspect]
     Active Substance: ADALIMUMAB
     Indication: ANKYLOSING SPONDYLITIS
     Route: 058
     Dates: start: 20180605
  9. SALAZINE [Concomitant]
     Active Substance: SULFASALAZINE
     Route: 048
     Dates: start: 20180626
  10. METHON [Concomitant]
     Indication: RESPIRATORY DISORDER
     Route: 048
     Dates: start: 20180624, end: 20180627
  11. BOKEY [Concomitant]
     Indication: BLOOD DISORDER
     Route: 048
     Dates: start: 20180627
  12. WELIZEN [Concomitant]
     Indication: GASTROINTESTINAL DISORDER
     Route: 048
     Dates: start: 20180627, end: 20180702
  13. SALAZINE [Concomitant]
     Active Substance: SULFASALAZINE
     Indication: GASTROINTESTINAL DISORDER
     Route: 048
     Dates: start: 20180605, end: 201806
  14. MEDASON [Concomitant]
     Indication: METABOLIC DISORDER
  15. BIO?THREE [Concomitant]
     Active Substance: HERBALS
     Indication: GASTROINTESTINAL DISORDER
     Dosage: DAILY DOSE: 2 PK??UNIT DOSE: 1 PK
     Route: 048
     Dates: start: 20180702
  16. MEDASON [Concomitant]
     Indication: ENDOCRINE DISORDER
     Route: 042
     Dates: start: 20180605, end: 20180619
  17. CURAM [Concomitant]
     Active Substance: AMOXICILLIN\CLAVULANATE POTASSIUM
     Indication: ANTIBIOTIC PROPHYLAXIS
     Dosage: STAT
     Route: 041
     Dates: start: 20180624, end: 20180624
  18. CELEBREX [Concomitant]
     Active Substance: CELECOXIB
     Indication: ANALGESIC THERAPY
     Route: 048
     Dates: start: 20180605, end: 20180703
  19. BROEN?C [Concomitant]
     Indication: RESPIRATORY DISORDER
     Route: 048
     Dates: start: 20180624, end: 20180627
  20. SMECTA [Concomitant]
     Active Substance: MONTMORILLONITE
     Indication: GASTROINTESTINAL DISORDER
     Dosage: DAILY DOSE:3 PK??UNIT DOSE: 1PK
     Route: 048
     Dates: start: 20180703
  21. CURAM [Concomitant]
     Active Substance: AMOXICILLIN\CLAVULANATE POTASSIUM
     Indication: ANTIBIOTIC PROPHYLAXIS
     Dosage: AMOXICILLIN 875 MG/CLAVULANIC ACID 125 MG
     Route: 048
     Dates: start: 20180624, end: 20180627
  22. CELEBREX [Concomitant]
     Active Substance: CELECOXIB
     Route: 048
     Dates: start: 20180627
  23. TRAMACET [Concomitant]
     Active Substance: ACETAMINOPHEN\TRAMADOL
     Indication: ANALGESIC THERAPY
     Route: 048
     Dates: start: 20180703
  24. CONCOR [Concomitant]
     Active Substance: BISOPROLOL FUMARATE
     Indication: CARDIOVASCULAR DISORDER
     Route: 048
     Dates: start: 20180627

REACTIONS (3)
  - Pulmonary tuberculosis [Unknown]
  - Cough [Recovered/Resolved]
  - Pneumonia [Not Recovered/Not Resolved]

NARRATIVE: CASE EVENT DATE: 2018
